FAERS Safety Report 6259525-9 (Version None)
Quarter: 2009Q3

REPORT INFORMATION
  Report Type: 
  Country: None (occurrence: None)
  Receive Date: 20090708
  Receipt Date: 20090706
  Transmission Date: 20100115
  Serious: Yes (Death)
  Sender: FDA-Public Use
  Company Number: PL-BRISTOL-MYERS SQUIBB COMPANY-14691059

PATIENT
  Age: 64 Year
  Sex: Male
  Weight: 47 kg

DRUGS (3)
  1. PACLITAXEL [Suspect]
     Indication: NON-SMALL CELL LUNG CANCER
     Dosage: UNK-19MAY09
     Route: 042
     Dates: start: 20090519, end: 20090519
  2. CARBOPLATIN [Suspect]
     Indication: NON-SMALL CELL LUNG CANCER
     Dosage: UNKNOWN-19MAY09.
     Route: 042
     Dates: start: 20090519, end: 20090519
  3. CP-751,871 [Suspect]
     Indication: NON-SMALL CELL LUNG CANCER
     Dosage: UNK-19MAY09.
     Route: 042
     Dates: start: 20090519, end: 20090519

REACTIONS (1)
  - DEATH [None]
